FAERS Safety Report 12697543 (Version 1)
Quarter: 2016Q3

REPORT INFORMATION
  Report Type: Spontaneous
  Country: US (occurrence: US)
  Receive Date: 20160830
  Receipt Date: 20160830
  Transmission Date: 20161109
  Serious: No
  Sender: FDA-Public Use
  Company Number: US-BEH-2016072929

PATIENT
  Age: 58 Year
  Sex: Female
  Weight: 83.9 kg

DRUGS (27)
  1. PREMPHASE [Concomitant]
     Active Substance: ESTROGENS, CONJUGATED\MEDROXYPROGESTERONE ACETATE
  2. SYNTHROID [Concomitant]
     Active Substance: LEVOTHYROXINE SODIUM
  3. VALTREX [Concomitant]
     Active Substance: VALACYCLOVIR HYDROCHLORIDE
  4. HIZENTRA [Suspect]
     Active Substance: HUMAN IMMUNOGLOBULIN G
     Dosage: UNK
     Route: 058
  5. ACETAMINOPHEN. [Concomitant]
     Active Substance: ACETAMINOPHEN
  6. AMBIEN [Concomitant]
     Active Substance: ZOLPIDEM TARTRATE
  7. LAMICTAL [Concomitant]
     Active Substance: LAMOTRIGINE
  8. PROBIOTICS [Concomitant]
     Active Substance: PROBIOTICS NOS
  9. HIZENTRA [Suspect]
     Active Substance: HUMAN IMMUNOGLOBULIN G
     Dosage: UNK
     Route: 058
  10. DIPHENHYDRAMINE. [Concomitant]
     Active Substance: DIPHENHYDRAMINE
  11. COZAAR [Concomitant]
     Active Substance: LOSARTAN POTASSIUM
  12. HIZENTRA [Suspect]
     Active Substance: HUMAN IMMUNOGLOBULIN G
     Indication: IMMUNODEFICIENCY COMMON VARIABLE
     Dosage: 12 G, EVERY WEEK
     Route: 058
  13. HYOSCYAMINE. [Concomitant]
     Active Substance: HYOSCYAMINE
  14. VYVANSE [Concomitant]
     Active Substance: LISDEXAMFETAMINE DIMESYLATE
  15. CYMBALTA [Concomitant]
     Active Substance: DULOXETINE HYDROCHLORIDE
  16. BUDESONIDE. [Concomitant]
     Active Substance: BUDESONIDE
  17. ALPRAZOLAM. [Concomitant]
     Active Substance: ALPRAZOLAM
  18. NASACORT [Concomitant]
     Active Substance: TRIAMCINOLONE ACETONIDE
  19. ULTRAM [Concomitant]
     Active Substance: TRAMADOL HYDROCHLORIDE
  20. LATUDA [Concomitant]
     Active Substance: LURASIDONE HYDROCHLORIDE
  21. EPINEPHRINE. [Concomitant]
     Active Substance: EPINEPHRINE
  22. LMX                                /00033401/ [Concomitant]
  23. NAPROXEN. [Concomitant]
     Active Substance: NAPROXEN
  24. IMITREX [Concomitant]
     Active Substance: SUMATRIPTAN SUCCINATE
  25. ALBUTEROL                          /00139501/ [Concomitant]
     Active Substance: ALBUTEROL
  26. ZANAFLEX [Concomitant]
     Active Substance: TIZANIDINE HYDROCHLORIDE
  27. DEXILANT [Concomitant]
     Active Substance: DEXLANSOPRAZOLE

REACTIONS (3)
  - Weight increased [Recovered/Resolved]
  - Eyelid oedema [Recovered/Resolved]
  - Peripheral swelling [Recovered/Resolved]

NARRATIVE: CASE EVENT DATE: 20160818
